FAERS Safety Report 24832310 (Version 2)
Quarter: 2025Q1

REPORT INFORMATION
  Report Type: Spontaneous
  Country: FI (occurrence: FI)
  Receive Date: 20250110
  Receipt Date: 20250213
  Transmission Date: 20250409
  Serious: Yes (Other)
  Sender: ALEXION PHARMACEUTICALS
  Company Number: FI-ASTRAZENECA-202410EEA005797FI

PATIENT

DRUGS (2)
  1. TAGRISSO [Suspect]
     Active Substance: OSIMERTINIB
     Indication: Urticaria
     Dosage: 40 MILLIGRAM, QD
  2. KEYTRUDA [Concomitant]
     Active Substance: PEMBROLIZUMAB
     Route: 065

REACTIONS (4)
  - Drug-induced liver injury [Unknown]
  - Urticaria [Unknown]
  - Alopecia [Unknown]
  - Insomnia [Unknown]
